FAERS Safety Report 4809178-9 (Version None)
Quarter: 2005Q4

REPORT INFORMATION
  Report Type: 
  Country: None (occurrence: None)
  Receive Date: 20051021
  Receipt Date: 20051021
  Transmission Date: 20060501
  Serious: Yes (Hospitalization)
  Sender: FDA-Public Use
  Company Number: None

PATIENT
  Age: 84 Year
  Sex: Male

DRUGS (1)
  1. METOPROLOL [Suspect]
     Dosage: PO
     Route: 048

REACTIONS (2)
  - BRADYCARDIA [None]
  - VERTIGO [None]
